FAERS Safety Report 11453047 (Version 1)
Quarter: 2015Q3

REPORT INFORMATION
  Report Type: Spontaneous
  Country: US (occurrence: US)
  Receive Date: 20150831
  Receipt Date: 20150831
  Transmission Date: 20151125
  Serious: No
  Sender: FDA-Public Use
  Company Number: US-ELI_LILLY_AND_COMPANY-US200909002380

PATIENT
  Sex: Male

DRUGS (1)
  1. CYMBALTA [Suspect]
     Active Substance: DULOXETINE HYDROCHLORIDE
     Indication: ANXIETY DISORDER
     Dosage: 20 MG, DAILY (1/D)

REACTIONS (6)
  - Anxiety [Recovered/Resolved]
  - Aggression [Recovered/Resolved]
  - Intentional product misuse [Unknown]
  - Irritability [Recovered/Resolved]
  - Mood swings [Recovered/Resolved]
  - Medication error [Unknown]
